FAERS Safety Report 4544170-3 (Version None)
Quarter: 2005Q1

REPORT INFORMATION
  Report Type: 
  Country: None (occurrence: None)
  Receive Date: 20050104
  Receipt Date: 20041021
  Transmission Date: 20050727
  Serious: Yes (Death, Life-Threatening, Other)
  Sender: FDA-Public Use
  Company Number: PHBS2004JP14206

PATIENT
  Age: 83 Year
  Sex: Male
  Weight: 43 kg

DRUGS (7)
  1. AMLODIN [Suspect]
     Indication: HYPERTENSION
     Dosage: 5 MG, QD
     Route: 048
     Dates: end: 20041022
  2. LOXONIN [Suspect]
     Indication: SUBDURAL HAEMORRHAGE
     Dosage: 180 MG/DAY
     Route: 048
     Dates: end: 20041022
  3. ALEVIATIN [Suspect]
     Indication: CONVULSION
     Dosage: 100 MG, TID
     Route: 048
     Dates: start: 20041022
  4. HUMULIN R [Suspect]
     Indication: DIABETES MELLITUS
     Dosage: 6 TO 8 IU
     Route: 058
  5. BLOPRESS [Concomitant]
     Indication: HYPERTENSION
     Dosage: 8 MG, QD
     Route: 048
     Dates: end: 20040921
  6. DIOVAN [Suspect]
     Indication: HYPERTENSION
     Dosage: 80 MG, QD
     Route: 048
     Dates: start: 20040922, end: 20041022
  7. DAONIL [Concomitant]
     Dates: end: 20041022

REACTIONS (13)
  - APLASIA PURE RED CELL [None]
  - BLOOD ALBUMIN DECREASED [None]
  - C-REACTIVE PROTEIN INCREASED [None]
  - FOLATE DEFICIENCY [None]
  - HAEMATOCRIT DECREASED [None]
  - HAEMOGLOBIN DECREASED [None]
  - MULTI-ORGAN FAILURE [None]
  - MYELODYSPLASTIC SYNDROME [None]
  - NORMOCHROMIC NORMOCYTIC ANAEMIA [None]
  - PERNICIOUS ANAEMIA [None]
  - PROTEIN TOTAL DECREASED [None]
  - PYREXIA [None]
  - RED BLOOD CELL COUNT DECREASED [None]
